FAERS Safety Report 8442371-5 (Version None)
Quarter: 2012Q2

REPORT INFORMATION
  Report Type: 
  Country: None (occurrence: None)
  Receive Date: 20120615
  Receipt Date: 20120105
  Transmission Date: 20120825
  Serious: No
  Sender: FDA-Public Use
  Company Number: US-NOVEN-12US003888

PATIENT
  Sex: Male

DRUGS (2)
  1. DAYTRANA [Suspect]
     Indication: ATTENTION DEFICIT/HYPERACTIVITY DISORDER
     Dosage: 15 MG, 1 PATCH DAILY FOR 9 HRS
     Route: 062
     Dates: start: 20100101
  2. DAYTRANA [Suspect]
     Dosage: 10 MG, UNKNOWN
     Route: 062
     Dates: start: 20090101, end: 20100101

REACTIONS (3)
  - DRUG INEFFECTIVE [None]
  - EDUCATIONAL PROBLEM [None]
  - DISTURBANCE IN SOCIAL BEHAVIOUR [None]
